FAERS Safety Report 17517551 (Version 1)
Quarter: 2020Q1

REPORT INFORMATION
  Report Type: Spontaneous
  Country: FR (occurrence: FR)
  Receive Date: 20200309
  Receipt Date: 20200309
  Transmission Date: 20200409
  Serious: Yes (Hospitalization)
  Sender: FDA-Public Use
  Company Number: NVSC2020FR062396

PATIENT
  Age: 49 Year
  Sex: Male
  Weight: 110 kg

DRUGS (2)
  1. HYDROCORTISONE. [Suspect]
     Active Substance: HYDROCORTISONE
     Indication: ABSCESS
     Dosage: UNK
     Route: 003
     Dates: start: 20190417, end: 20190419
  2. PREDNISOLONE. [Suspect]
     Active Substance: PREDNISOLONE
     Indication: ABSCESS
     Dosage: 60 MG, QD
     Route: 048
     Dates: start: 20190417, end: 20190419

REACTIONS (1)
  - Perineal cellulitis [Recovering/Resolving]

NARRATIVE: CASE EVENT DATE: 20190419
